FAERS Safety Report 20773501 (Version 2)
Quarter: 2022Q2

REPORT INFORMATION
  Report Type: Spontaneous
  Country: FR (occurrence: FR)
  Receive Date: 20220502
  Receipt Date: 20220613
  Transmission Date: 20220721
  Serious: Yes (Death, Life-Threatening, Hospitalization, Other)
  Sender: FDA-Public Use
  Company Number: FR-MACLEODS PHARMACEUTICALS US LTD-MAC2022035396

PATIENT

DRUGS (3)
  1. TRAMADOL HYDROCHLORIDE [Suspect]
     Active Substance: TRAMADOL HYDROCHLORIDE
     Indication: Analgesic therapy
     Dosage: 100 MILLIGRAM, SINGLE (TOPALGIC )
     Route: 042
  2. PERFALGAN [Concomitant]
     Active Substance: ACETAMINOPHEN
     Indication: Analgesic therapy
     Dosage: 30 MILLILITER, Q.H.(1 G WAS PLACED IN A 250 ML SOLUTION OF SODIUM CHLORIDE)
     Route: 042
  3. SODIUM CHLORIDE [Concomitant]
     Active Substance: SODIUM CHLORIDE
     Indication: Product used for unknown indication
     Dosage: 30 MILLILITER, Q.H.(1 G WAS PLACED IN A 250 ML SOLUTION OF SODIUM CHLORIDE)
     Route: 042

REACTIONS (7)
  - Cardio-respiratory arrest [Fatal]
  - Cardiotoxicity [Fatal]
  - Pallor [Not Recovered/Not Resolved]
  - Hyperhidrosis [Not Recovered/Not Resolved]
  - Tonic clonic movements [Unknown]
  - Malaise [Not Recovered/Not Resolved]
  - Nausea [Not Recovered/Not Resolved]
